FAERS Safety Report 12007521 (Version 1)
Quarter: 2016Q1

REPORT INFORMATION
  Report Type: Spontaneous
  Country: FR (occurrence: FR)
  Receive Date: 20160204
  Receipt Date: 20160204
  Transmission Date: 20160526
  Serious: Yes (Hospitalization)
  Sender: FDA-Public Use
  Company Number: FR-ABBVIE-16P-056-1549601-00

PATIENT
  Age: 63 Year
  Sex: Male

DRUGS (7)
  1. CORGARD [Concomitant]
     Active Substance: NADOLOL
     Indication: MYOCARDIAL ISCHAEMIA
  2. VIEKIRAX [Suspect]
     Active Substance: OMBITASVIR\PARITAPREVIR\RITONAVIR
     Indication: HEPATITIS C
     Route: 048
     Dates: start: 20150916
  3. COVERSYL [Concomitant]
     Active Substance: PERINDOPRIL
     Indication: MYOCARDIAL ISCHAEMIA
  4. PREVISCAN [Interacting]
     Active Substance: FLUINDIONE
     Indication: MYOCARDIAL ISCHAEMIA
     Route: 048
     Dates: end: 201510
  5. EXVIERA [Suspect]
     Active Substance: DASABUVIR
     Indication: HEPATITIS C
     Route: 048
     Dates: start: 20150916
  6. OMACOR [Concomitant]
     Active Substance: OMEGA-3-ACID ETHYL ESTERS
     Indication: MYOCARDIAL ISCHAEMIA
  7. KARDEGIC [Concomitant]
     Active Substance: ASPIRIN LYSINE
     Indication: MYOCARDIAL ISCHAEMIA

REACTIONS (4)
  - International normalised ratio decreased [Recovered/Resolved]
  - Drug interaction [Unknown]
  - Presyncope [Recovered/Resolved]
  - Asthenia [Unknown]

NARRATIVE: CASE EVENT DATE: 201510
